FAERS Safety Report 18965319 (Version 2)
Quarter: 2021Q2

REPORT INFORMATION
  Report Type: Spontaneous
  Country: JP (occurrence: JP)
  Receive Date: 20210303
  Receipt Date: 20210407
  Transmission Date: 20210717
  Serious: Yes (Other)
  Sender: FDA-Public Use
  Company Number: JP-BAYER-2021-089386

PATIENT
  Age: 9 Decade
  Sex: Male

DRUGS (9)
  1. TEPRENONE [Concomitant]
     Active Substance: TEPRENONE
  2. FLUVASTATIN [Concomitant]
     Active Substance: FLUVASTATIN SODIUM
  3. SAIKOSEIKANTO [Concomitant]
  4. PARIET [Concomitant]
     Active Substance: RABEPRAZOLE SODIUM
  5. SILODOSIN. [Concomitant]
     Active Substance: SILODOSIN
  6. AMLODIPINE [Concomitant]
     Active Substance: AMLODIPINE BESYLATE
  7. NEXAVAR [Suspect]
     Active Substance: SORAFENIB
     Indication: HEPATOCELLULAR CARCINOMA
     Dosage: DAILY DOSE 600 MG
     Route: 048
     Dates: start: 20201006, end: 20210225
  8. L?CARBOCISTEINE [Concomitant]
     Active Substance: CARBOCYSTEINE
  9. MUCOSAL [AMBROXOL HYDROCHLORIDE] [Concomitant]

REACTIONS (5)
  - Macular oedema [None]
  - Visual impairment [Not Recovered/Not Resolved]
  - Retinal vein occlusion [Not Recovered/Not Resolved]
  - Retinal haemorrhage [Not Recovered/Not Resolved]
  - Vision blurred [Not Recovered/Not Resolved]

NARRATIVE: CASE EVENT DATE: 20210224
